FAERS Safety Report 11044800 (Version 1)
Quarter: 2015Q2

REPORT INFORMATION
  Report Type: Report from Study
  Country: US (occurrence: US)
  Receive Date: 20150417
  Receipt Date: 20150417
  Transmission Date: 20150821
  Serious: Yes (Other)
  Sender: FDA-Public Use
  Company Number: US-SA-2014SA114591

PATIENT
  Age: 54 Year
  Sex: Female

DRUGS (2)
  1. AUBAGIO [Suspect]
     Active Substance: TERIFLUNOMIDE
     Indication: MULTIPLE SCLEROSIS
     Route: 048
     Dates: start: 20140816
  2. AMPYRA [Concomitant]
     Active Substance: DALFAMPRIDINE
     Dates: start: 2013

REACTIONS (9)
  - Fatigue [Unknown]
  - Fall [Unknown]
  - Weight decreased [Recovered/Resolved]
  - Multiple sclerosis [Unknown]
  - Feeling abnormal [Unknown]
  - Walking aid user [Unknown]
  - Balance disorder [Unknown]
  - Hypokinesia [Unknown]
  - Alopecia [Recovered/Resolved]
